FAERS Safety Report 10699707 (Version 1)
Quarter: 2015Q1

REPORT INFORMATION
  Report Type: Spontaneous
  Country: US (occurrence: None)
  Receive Date: 20150108
  Receipt Date: 20150108
  Transmission Date: 20150721
  Serious: Yes (Hospitalization)
  Sender: FDA-Public Use
  Company Number: None

PATIENT
  Sex: Female

DRUGS (1)
  1. CANDIDA ALBICANS. [Suspect]
     Active Substance: CANDIDA ALBICANS
     Indication: SKIN PAPILLOMA

REACTIONS (2)
  - Peripheral swelling [None]
  - Hypersensitivity [None]
